FAERS Safety Report 9395009 (Version 1)
Quarter: 2013Q3

REPORT INFORMATION
  Report Type: Report from Study
  Country: GB (occurrence: GB)
  Receive Date: 20130711
  Receipt Date: 20130711
  Transmission Date: 20140515
  Serious: Yes (Other)
  Sender: FDA-Public Use
  Company Number: GB-US-EMD SERONO, INC.-7148424

PATIENT
  Age: 30 Year
  Sex: Female
  Weight: 58 kg

DRUGS (1)
  1. REBIF [Suspect]
     Indication: RELAPSING-REMITTING MULTIPLE SCLEROSIS
     Route: 058
     Dates: start: 20110314, end: 20120323

REACTIONS (2)
  - Lip swelling [Recovered/Resolved]
  - Lip discolouration [Recovered/Resolved]
